FAERS Safety Report 14409525 (Version 5)
Quarter: 2020Q3

REPORT INFORMATION
  Report Type: Report from Study
  Country: CN (occurrence: CN)
  Receive Date: 20180119
  Receipt Date: 20190416
  Transmission Date: 20201104
  Serious: Yes (Death, Hospitalization)
  Sender: FDA-Public Use
  Company Number: CN-ASTRAZENECA-2017SF22463

PATIENT
  Age: 19398 Day
  Sex: Male

DRUGS (8)
  1. CAFFEINE. [Concomitant]
     Active Substance: CAFFEINE
     Indication: BLADDER PAIN
     Route: 048
     Dates: start: 20171104, end: 20180103
  2. MEDI4736 [Suspect]
     Active Substance: DURVALUMAB
     Indication: BLADDER TRANSITIONAL CELL CARCINOMA
     Route: 042
     Dates: start: 20171114, end: 20171114
  3. MEDI4736 [Suspect]
     Active Substance: DURVALUMAB
     Indication: BLADDER TRANSITIONAL CELL CARCINOMA
     Route: 042
     Dates: start: 20171017, end: 20171017
  4. AMINOPYRINE [Concomitant]
     Active Substance: AMINOPYRINE
     Indication: BLADDER PAIN
     Route: 048
     Dates: start: 20171104, end: 20180103
  5. PHENACETIN [Concomitant]
     Active Substance: PHENACETIN
     Indication: BLADDER PAIN
     Route: 048
     Dates: start: 20171104, end: 20180103
  6. TREMELIMUMAB. [Suspect]
     Active Substance: TREMELIMUMAB
     Indication: BLADDER TRANSITIONAL CELL CARCINOMA
     Route: 042
     Dates: start: 20171017, end: 20171017
  7. TREMELIMUMAB. [Suspect]
     Active Substance: TREMELIMUMAB
     Indication: BLADDER TRANSITIONAL CELL CARCINOMA
     Route: 042
     Dates: start: 20171114, end: 20171114
  8. PHENOBARBITONE [Concomitant]
     Active Substance: PHENOBARBITAL
     Indication: BLADDER PAIN
     Route: 048
     Dates: start: 20171104, end: 20180103

REACTIONS (1)
  - Deep vein thrombosis [Not Recovered/Not Resolved]

NARRATIVE: CASE EVENT DATE: 20171120
